FAERS Safety Report 9472997 (Version 1)
Quarter: 2013Q3

REPORT INFORMATION
  Report Type: Spontaneous
  Country: US (occurrence: US)
  Receive Date: 20130823
  Receipt Date: 20130823
  Transmission Date: 20140515
  Serious: No
  Sender: FDA-Public Use
  Company Number: US-BRISTOL-MYERS SQUIBB COMPANY-17319435

PATIENT
  Age: 73 Year
  Sex: Male
  Weight: 124.26 kg

DRUGS (1)
  1. SPRYCEL [Suspect]
     Dosage: PRESCRIPTION# 293866
     Route: 048
     Dates: start: 20130104

REACTIONS (6)
  - Oropharyngeal pain [Unknown]
  - Nasopharyngitis [Unknown]
  - Headache [Unknown]
  - Respiratory tract congestion [Unknown]
  - Sinus congestion [Unknown]
  - Pyrexia [Unknown]
